FAERS Safety Report 11486540 (Version 2)
Quarter: 2015Q4

REPORT INFORMATION
  Report Type: Spontaneous
  Country: US (occurrence: US)
  Receive Date: 20150910
  Receipt Date: 20151119
  Transmission Date: 20160304
  Serious: Yes (Hospitalization)
  Sender: FDA-Public Use
  Company Number: US-PFIZER INC-2015288092

PATIENT
  Age: 59 Year
  Sex: Male
  Weight: 69 kg

DRUGS (5)
  1. VICODIN ES [Concomitant]
     Active Substance: ACETAMINOPHEN\HYDROCODONE BITARTRATE
     Indication: PAIN
     Dosage: 750 MG, CYCLIC EVERY 6 HOURS
     Dates: start: 20111222
  2. LYRICA [Suspect]
     Active Substance: PREGABALIN
     Dosage: 150 MG, 3X/DAY, 2 IN THE MORNING AND 1 AT NIGHT
     Route: 048
  3. LYRICA [Suspect]
     Active Substance: PREGABALIN
     Indication: SPONDYLOARTHROPATHY
     Dosage: 150 MG, 2X/DAY IN THE MORNING AND ONE AT NIGHT
     Route: 048
  4. LYRICA [Suspect]
     Active Substance: PREGABALIN
     Indication: FIBROMYALGIA
     Dosage: 150 MG, 1X/DAY
     Route: 048
  5. DEPAKOTE [Concomitant]
     Active Substance: DIVALPROEX SODIUM
     Indication: BIPOLAR DISORDER
     Dosage: 1500 MG, DAILY (TWO 500MG IN THE MORNING AND ONE 500MG AT NIGHT)
     Route: 048

REACTIONS (10)
  - Abdominal distension [Unknown]
  - Decreased appetite [Unknown]
  - Pain [Unknown]
  - Joint range of motion decreased [Not Recovered/Not Resolved]
  - Peripheral swelling [Not Recovered/Not Resolved]
  - Weight decreased [Not Recovered/Not Resolved]
  - Condition aggravated [Unknown]
  - Fluid retention [Unknown]
  - Neuropathy peripheral [Not Recovered/Not Resolved]
  - Pain [Not Recovered/Not Resolved]

NARRATIVE: CASE EVENT DATE: 201508
